FAERS Safety Report 8175845-5 (Version None)
Quarter: 2012Q1

REPORT INFORMATION
  Report Type: 
  Country: None (occurrence: None)
  Receive Date: 20120228
  Receipt Date: 20120228
  Transmission Date: 20120608
  Serious: No
  Sender: FDA-Public Use
  Company Number: None

PATIENT
  Age: 71 Year
  Sex: Female
  Weight: 74.8435 kg

DRUGS (1)
  1. ATORVASTATIN [Suspect]
     Indication: DRUG THERAPY
     Dosage: 10MG 1X A DAY AT NIGHT
     Dates: start: 20120126, end: 20120129

REACTIONS (1)
  - DRUG HYPERSENSITIVITY [None]
